FAERS Safety Report 7335717-2 (Version None)
Quarter: 2011Q1

REPORT INFORMATION
  Report Type: 
  Country: None (occurrence: None)
  Receive Date: 20110307
  Receipt Date: 20110224
  Transmission Date: 20110831
  Serious: Yes (Hospitalization)
  Sender: FDA-Public Use
  Company Number: B0696846A

PATIENT
  Sex: Male
  Weight: 45 kg

DRUGS (5)
  1. ENTERONON-R [Concomitant]
     Indication: PROPHYLAXIS AGAINST DIARRHOEA
     Dosage: 3G PER DAY
     Route: 048
     Dates: start: 20101029, end: 20101102
  2. SPIRIVA [Concomitant]
     Indication: CHRONIC OBSTRUCTIVE PULMONARY DISEASE
     Dosage: 18MCG PER DAY
     Route: 055
     Dates: start: 20091111
  3. SERETIDE [Suspect]
     Indication: CHRONIC OBSTRUCTIVE PULMONARY DISEASE
     Dosage: 500MCG PER DAY
     Route: 055
     Dates: start: 20091111
  4. MICARDIS [Concomitant]
     Dosage: 20MG PER DAY
     Route: 048
  5. ERYTHROCIN LACTOBIONATE [Concomitant]
     Dosage: 200MG PER DAY
     Route: 048

REACTIONS (5)
  - PNEUMONIA BACTERIAL [None]
  - ACUTE RESPIRATORY FAILURE [None]
  - PRODUCTIVE COUGH [None]
  - PYREXIA [None]
  - COUGH [None]
